FAERS Safety Report 10055140 (Version 2)
Quarter: 2014Q2

REPORT INFORMATION
  Report Type: Spontaneous
  Country: US (occurrence: US)
  Receive Date: 20140402
  Receipt Date: 20140625
  Transmission Date: 20141212
  Serious: No
  Sender: FDA-Public Use
  Company Number: US-SA-2014SA023564

PATIENT
  Age: 60 Year
  Sex: Female

DRUGS (8)
  1. AUBAGIO [Suspect]
     Indication: MULTIPLE SCLEROSIS
     Route: 065
     Dates: start: 20130812
  2. SYNTHROID [Concomitant]
     Indication: HYPOTHYROIDISM
     Route: 048
     Dates: start: 2010
  3. CRESTOR [Concomitant]
     Indication: HYPOLIPIDAEMIA
     Route: 048
     Dates: start: 2014
  4. MULTIVITAMINS [Concomitant]
     Indication: NUTRITIONAL SUPPLEMENTATION
     Route: 048
     Dates: start: 2000
  5. CALCIUM [Concomitant]
     Indication: NUTRITIONAL SUPPLEMENTATION
     Route: 048
     Dates: start: 2000
  6. VITAMIN D [Concomitant]
     Indication: NUTRITIONAL SUPPLEMENTATION
     Route: 048
     Dates: start: 2010
  7. ALL OTHER THERAPEUTIC PRODUCTS [Concomitant]
     Indication: NUTRITIONAL SUPPLEMENTATION
     Route: 048
     Dates: start: 2011
  8. MOTRIN [Concomitant]
     Indication: PROPHYLAXIS
     Route: 048
     Dates: start: 2010

REACTIONS (1)
  - Alopecia [Unknown]
